FAERS Safety Report 12797333 (Version 2)
Quarter: 2016Q4

REPORT INFORMATION
  Report Type: Report from Study
  Country: US (occurrence: US)
  Receive Date: 20160929
  Receipt Date: 20161102
  Transmission Date: 20170207
  Serious: Yes (Other)
  Sender: FDA-Public Use
  Company Number: US-AMGEN-USASL2016133462

PATIENT

DRUGS (1)
  1. KYPROLIS [Suspect]
     Active Substance: CARFILZOMIB
     Indication: PRODUCT USED FOR UNKNOWN INDICATION
     Dosage: UNK
     Route: 065

REACTIONS (27)
  - Dyspnoea [Unknown]
  - Fatigue [Unknown]
  - Acute kidney injury [Unknown]
  - Fluid overload [Unknown]
  - Headache [Unknown]
  - Constipation [Unknown]
  - Vomiting [Unknown]
  - Anaemia [Unknown]
  - Nausea [Unknown]
  - Chronic kidney disease [Unknown]
  - Infusion related reaction [Unknown]
  - Rhinitis allergic [Unknown]
  - Generalised oedema [Unknown]
  - Pain [Unknown]
  - Thrombocytopenia [Unknown]
  - Rib fracture [Unknown]
  - Hypersensitivity [Unknown]
  - Dizziness [Unknown]
  - Atrial fibrillation [Unknown]
  - Cancer pain [Unknown]
  - Chondropathy [Unknown]
  - Bone disorder [Unknown]
  - Diarrhoea [Unknown]
  - Cough [Unknown]
  - Neutropenia [Unknown]
  - Nephrogenic anaemia [Unknown]
  - Panic disorder [Unknown]

NARRATIVE: CASE EVENT DATE: 20150504
